FAERS Safety Report 10220577 (Version 1)
Quarter: 2014Q2

REPORT INFORMATION
  Report Type: Spontaneous
  Country: US (occurrence: None)
  Receive Date: 20140604
  Receipt Date: 20140604
  Transmission Date: 20141212
  Serious: Yes (Death)
  Sender: FDA-Public Use
  Company Number: ADR-2014-00925

PATIENT
  Sex: Male

DRUGS (1)
  1. LIORESAL [Suspect]
     Indication: MUSCLE SPASTICITY
     Dosage: 120.1 MCG/DAY

REACTIONS (5)
  - Colon cancer [None]
  - Concomitant disease aggravated [None]
  - Metastases to liver [None]
  - Carcinoembryonic antigen increased [None]
  - Unevaluable event [None]
